FAERS Safety Report 7331972-3 (Version None)
Quarter: 2011Q1

REPORT INFORMATION
  Report Type: 
  Country: None (occurrence: None)
  Receive Date: 20110304
  Receipt Date: 20110223
  Transmission Date: 20110831
  Serious: Yes (Death, Hospitalization, Other)
  Sender: FDA-Public Use
  Company Number: VE-GENZYME-CERZ-1001902

PATIENT

DRUGS (1)
  1. CEREZYME [Suspect]
     Indication: GAUCHER'S DISEASE
     Dosage: UNK UNK, UNK
     Route: 042
     Dates: start: 20090701

REACTIONS (4)
  - CYANOSIS [None]
  - HYPOTENSION [None]
  - DEATH [None]
  - EPISTAXIS [None]
